FAERS Safety Report 23405749 (Version 1)
Quarter: 2024Q1

REPORT INFORMATION
  Report Type: Spontaneous
  Country: US (occurrence: None)
  Receive Date: 20240113
  Receipt Date: 20240113
  Transmission Date: 20240410
  Serious: No
  Sender: FDA-Public Use
  Company Number: None

PATIENT
  Age: 8 Year
  Sex: Female
  Weight: 29.25 kg

DRUGS (1)
  1. MONTELUKAST [Suspect]
     Active Substance: MONTELUKAST SODIUM
     Indication: Sleep apnoea syndrome
     Dates: start: 20210924, end: 20230525

REACTIONS (2)
  - Aggression [None]
  - Suicidal ideation [None]

NARRATIVE: CASE EVENT DATE: 20240112
